FAERS Safety Report 4740737-8 (Version None)
Quarter: 2005Q3

REPORT INFORMATION
  Report Type: 
  Country: None (occurrence: None)
  Receive Date: 20050801
  Receipt Date: 20050628
  Transmission Date: 20060218
  Serious: No
  Sender: FDA-Public Use
  Company Number: 2005PV000200

PATIENT
  Age: 69 Year
  Sex: Female

DRUGS (2)
  1. BYETTA [Suspect]
     Dosage: 5 UG
     Dates: start: 20050623
  2. GLYBURIDE [Concomitant]

REACTIONS (1)
  - BLOOD GLUCOSE DECREASED [None]
